FAERS Safety Report 5636370-6 (Version None)
Quarter: 2008Q1

REPORT INFORMATION
  Report Type: 
  Country: None (occurrence: None)
  Receive Date: 20080225
  Receipt Date: 20071031
  Transmission Date: 20080703
  Serious: No
  Sender: FDA-Public Use
  Company Number: A0690787A

PATIENT
  Age: 45 Year
  Sex: Female

DRUGS (4)
  1. VERAMYST [Suspect]
     Dosage: 2SPR PER DAY
     Route: 045
     Dates: start: 20071001, end: 20071027
  2. VITAMIN CAP [Concomitant]
  3. CALCIUM [Concomitant]
  4. ACNE MEDICATION [Concomitant]
     Route: 048

REACTIONS (4)
  - EUPHORIC MOOD [None]
  - FEELING ABNORMAL [None]
  - HEART RATE DECREASED [None]
  - NASAL ULCER [None]
